FAERS Safety Report 24665443 (Version 1)
Quarter: 2024Q4

REPORT INFORMATION
  Report Type: Spontaneous
  Country: GB (occurrence: GB)
  Receive Date: 20241126
  Receipt Date: 20241126
  Transmission Date: 20250115
  Serious: Yes (Hospitalization, Other)
  Sender: TORRENT PHARMA INC.
  Company Number: None

PATIENT
  Age: 53 Year
  Sex: Male

DRUGS (7)
  1. ARIPIPRAZOLE [Suspect]
     Active Substance: ARIPIPRAZOLE
     Indication: Hallucination, auditory
     Dosage: 10 MG TABLETS HALF TABLET OD
     Route: 065
     Dates: start: 20240905
  2. ATORVASTATIN [Concomitant]
     Active Substance: ATORVASTATIN
     Indication: Product used for unknown indication
     Dosage: 40 MG TABLETS 1 ON (EVERY NIGHT)
     Route: 065
  3. PAROXETINE [Concomitant]
     Active Substance: PAROXETINE
     Indication: Product used for unknown indication
     Dosage: 40 MG TABLETS 1 ON (EVERY MORNING)
     Route: 065
  4. PROCYCLIDINE [Concomitant]
     Active Substance: PROCYCLIDINE
     Indication: Product used for unknown indication
     Dosage: PROCYCLIDINE 5 MG TABLETS 1 BD (TWICE A DAY) OM/ON
     Route: 065
  5. PROMETHAZINE HYDROCHLORIDE [Concomitant]
     Active Substance: PROMETHAZINE HYDROCHLORIDE
     Indication: Product used for unknown indication
     Dosage: 25 MG TABLETS 2 ON PRN - TAKES MOST NIGHTS
     Route: 065
  6. SULPIRIDE [Concomitant]
     Active Substance: SULPIRIDE
     Indication: Product used for unknown indication
     Dosage: 400 MG TABLETS 2 BD OM/ON
     Route: 065
  7. Tolthen XL [Concomitant]
     Indication: Product used for unknown indication
     Dosage: 4 MG MODIFIED-RELEASE CAPSULES 1 OM
     Route: 065

REACTIONS (4)
  - Orthostatic hypotension [Recovered/Resolved]
  - Palpitations [Unknown]
  - Chest discomfort [Unknown]
  - Dizziness [Unknown]
